FAERS Safety Report 9720924 (Version 1)
Quarter: 2013Q4

REPORT INFORMATION
  Report Type: Spontaneous
  Country: US (occurrence: US)
  Receive Date: 20131129
  Receipt Date: 20131129
  Transmission Date: 20140711
  Serious: Yes (Other)
  Sender: FDA-Public Use
  Company Number: US-SA-2013SA121627

PATIENT
  Age: 56 Year
  Sex: Female

DRUGS (19)
  1. AUBAGIO [Suspect]
     Indication: MULTIPLE SCLEROSIS
     Route: 048
     Dates: start: 201304
  2. AMPYRA [Concomitant]
  3. CALCIUM CARBONATE [Concomitant]
  4. CENTRUM SILVER [Concomitant]
  5. CRESTOR [Concomitant]
  6. EDECRIN [Concomitant]
  7. EVENING PRIMROSE OIL [Concomitant]
  8. IBUPROFEN [Concomitant]
  9. ALL OTHER THERAPEUTIC PRODUCTS [Concomitant]
  10. LEXAPRO [Concomitant]
  11. MAGNESIUM OXIDE [Concomitant]
  12. MELOXICAM [Concomitant]
  13. NEURONTIN [Concomitant]
  14. NUVIGIL [Concomitant]
  15. STOOL SOFTENER [Concomitant]
  16. SYNTHROID [Concomitant]
  17. TAMOXIFEN CITRATE [Concomitant]
  18. VITAMIN D [Concomitant]
  19. ZINC [Concomitant]

REACTIONS (2)
  - Gait disturbance [Recovering/Resolving]
  - Hypoaesthesia [Recovering/Resolving]
